FAERS Safety Report 8193073-4 (Version None)
Quarter: 2012Q1

REPORT INFORMATION
  Report Type: 
  Country: None (occurrence: None)
  Receive Date: 20120308
  Receipt Date: 20120229
  Transmission Date: 20120608
  Serious: Yes (Death)
  Sender: FDA-Public Use
  Company Number: DE-MILLENNIUM PHARMACEUTICALS, INC.-2012-01540

PATIENT

DRUGS (3)
  1. COTRIM [Concomitant]
     Dosage: UNK
     Dates: start: 20080410
  2. VELCADE [Suspect]
     Indication: MULTIPLE MYELOMA
     Dosage: UNK
     Dates: start: 20111121, end: 20120119
  3. ASPIRIN [Concomitant]
     Dosage: UNK
     Dates: start: 20080801

REACTIONS (1)
  - DEATH [None]
